FAERS Safety Report 6837515-2 (Version None)
Quarter: 2010Q3

REPORT INFORMATION
  Report Type: 
  Country: None (occurrence: None)
  Receive Date: 20100713
  Receipt Date: 20070516
  Transmission Date: 20110219
  Serious: No
  Sender: FDA-Public Use
  Company Number: US-PFIZER INC-2007039853

PATIENT
  Sex: Female
  Weight: 75 kg

DRUGS (5)
  1. CHANTIX [Suspect]
     Indication: SMOKING CESSATION THERAPY
     Route: 048
     Dates: start: 20070510
  2. ANTIHYPERTENSIVES [Concomitant]
     Indication: HYPERTENSION
  3. VITAMIN C [Concomitant]
     Indication: SINUS DISORDER
  4. VITAMIN E [Concomitant]
     Indication: SINUS DISORDER
  5. CORICIDIN D SRT [Concomitant]
     Indication: SINUS DISORDER

REACTIONS (1)
  - NAUSEA [None]
